FAERS Safety Report 9256290 (Version 1)
Quarter: 2013Q2

REPORT INFORMATION
  Report Type: Spontaneous
  Country: US (occurrence: US)
  Receive Date: 20130425
  Receipt Date: 20130425
  Transmission Date: 20140414
  Serious: No
  Sender: FDA-Public Use
  Company Number: US-AMGEN-USASP2012072942

PATIENT
  Age: 35 Year
  Sex: Female
  Weight: 72.56 kg

DRUGS (4)
  1. NEULASTA [Suspect]
     Indication: COLONY STIMULATING FACTOR THERAPY
     Dosage: UNK
     Dates: start: 201105, end: 201201
  2. CHEMOTHERAPEUTICS [Concomitant]
     Dosage: UNK
  3. CLARITIN                           /00917501/ [Concomitant]
     Dosage: UNK
  4. ALLEGRA [Concomitant]
     Dosage: UNK

REACTIONS (2)
  - Fatigue [Recovered/Resolved]
  - Pain [Recovered/Resolved]
